FAERS Safety Report 11847434 (Version 2)
Quarter: 2015Q4

REPORT INFORMATION
  Report Type: Spontaneous
  Country: BR (occurrence: BR)
  Receive Date: 20151217
  Receipt Date: 20151230
  Transmission Date: 20160305
  Serious: Yes (Other)
  Sender: FDA-Public Use
  Company Number: PHHY2015BR164470

PATIENT
  Age: 76 Year
  Sex: Female
  Weight: 41 kg

DRUGS (1)
  1. RASILEZ [Suspect]
     Active Substance: ALISKIREN
     Indication: HYPERTENSION
     Dosage: 1 DF, QD
     Route: 048
     Dates: start: 2008

REACTIONS (14)
  - Dry skin [Not Recovered/Not Resolved]
  - Dizziness [Not Recovered/Not Resolved]
  - Fall [Recovering/Resolving]
  - Spinal disorder [Unknown]
  - Bone disorder [Unknown]
  - Pruritus [Not Recovered/Not Resolved]
  - Eating disorder [Unknown]
  - Concomitant disease aggravated [Not Recovered/Not Resolved]
  - Cough [Not Recovered/Not Resolved]
  - Spinal fracture [Recovering/Resolving]
  - Spinal pain [Unknown]
  - Single functional kidney [Unknown]
  - Urticaria [Not Recovered/Not Resolved]
  - Hypersensitivity [Not Recovered/Not Resolved]

NARRATIVE: CASE EVENT DATE: 201404
